FAERS Safety Report 5893728-8 (Version None)
Quarter: 2008Q3

REPORT INFORMATION
  Report Type: 
  Country: None (occurrence: None)
  Receive Date: 20080923
  Receipt Date: 20080908
  Transmission Date: 20090109
  Serious: Yes (Hospitalization, Disabling)
  Sender: FDA-Public Use
  Company Number: ZA-GENENTECH-268088

PATIENT
  Sex: Female

DRUGS (8)
  1. HERCEPTIN [Suspect]
     Indication: BREAST CANCER
     Dosage: 250 MG, Q3W
     Route: 042
     Dates: start: 20080903
  2. TAXOTERE [Suspect]
     Indication: BREAST CANCER
     Dosage: 170 MG, Q3W
     Route: 042
     Dates: start: 20080903
  3. GLUCOCORTICOID NOS [Suspect]
     Indication: PREMEDICATION
     Dosage: UNK
     Dates: start: 20080903
  4. CELESTONE TAB [Concomitant]
     Indication: DRUG USE FOR UNKNOWN INDICATION
     Dosage: UNK
     Dates: start: 20080904, end: 20080904
  5. CELESTONE TAB [Concomitant]
     Dosage: UNK
     Dates: start: 20080904, end: 20080905
  6. KYTRIL [Concomitant]
     Indication: DRUG USE FOR UNKNOWN INDICATION
     Dosage: UNK
     Dates: start: 20080904, end: 20080906
  7. ZANTAC [Concomitant]
     Indication: DRUG USE FOR UNKNOWN INDICATION
     Dosage: UNK
     Dates: start: 20080904
  8. UNKNOWN MEDICATION [Concomitant]
     Indication: DRUG USE FOR UNKNOWN INDICATION

REACTIONS (6)
  - ANGLE CLOSURE GLAUCOMA [None]
  - BLINDNESS UNILATERAL [None]
  - CELLULITIS ORBITAL [None]
  - ENDOPHTHALMITIS [None]
  - EXOPHTHALMOS [None]
  - WHITE BLOOD CELL COUNT DECREASED [None]
